FAERS Safety Report 9779383 (Version 2)
Quarter: 2013Q4

REPORT INFORMATION
  Report Type: Spontaneous
  Country: SE (occurrence: SE)
  Receive Date: 20131223
  Receipt Date: 20131223
  Transmission Date: 20140711
  Serious: Yes (Hospitalization, Other)
  Sender: FDA-Public Use
  Company Number: SE-ASTRAZENECA-2013SE88711

PATIENT
  Age: 27678 Day
  Sex: Male
  Weight: 82 kg

DRUGS (4)
  1. BRILIQUE [Suspect]
     Indication: STENT PLACEMENT
     Route: 048
     Dates: start: 20130503, end: 20131127
  2. BRILIQUE [Suspect]
     Indication: STENT PLACEMENT
     Route: 048
  3. TROMBYL [Suspect]
     Indication: ACUTE MYOCARDIAL INFARCTION
     Route: 065
     Dates: start: 20130503
  4. PREDNISOLON [Concomitant]
     Indication: INFLAMMATION

REACTIONS (5)
  - Ulcer [Unknown]
  - Hypotension [Unknown]
  - Anaemia [Unknown]
  - Gastric haemorrhage [Unknown]
  - Contusion [Unknown]
